FAERS Safety Report 19754758 (Version 1)
Quarter: 2021Q3

REPORT INFORMATION
  Report Type: Spontaneous
  Country: US (occurrence: US)
  Receive Date: 20210824
  Receipt Date: 20210824
  Transmission Date: 20211014
  Serious: No
  Sender: FDA-Public Use
  Company Number: None

PATIENT
  Age: 64 Year
  Sex: Female

DRUGS (18)
  1. AZELAIC ACID. [Concomitant]
     Active Substance: AZELAIC ACID
  2. DEXAMETHASON [Concomitant]
     Active Substance: DEXAMETHASONE
  3. FOLIC ACID. [Concomitant]
     Active Substance: FOLIC ACID
  4. FENOFIBRATE. [Concomitant]
     Active Substance: FENOFIBRATE
  5. AMLOD/BENAZP [Concomitant]
  6. PREGABALIN. [Concomitant]
     Active Substance: PREGABALIN
  7. AMLODIPINE [Concomitant]
     Active Substance: AMLODIPINE BESYLATE
  8. METAXALONE. [Concomitant]
     Active Substance: METAXALONE
  9. METOPROLOL SUC ER [Concomitant]
  10. OMEPRAZOLE. [Concomitant]
     Active Substance: OMEPRAZOLE
  11. METHOTREXATE. [Concomitant]
     Active Substance: METHOTREXATE
  12. METOPROLOL INJ [Concomitant]
  13. FLONASE SPR [Concomitant]
  14. XELJANZ XR [Suspect]
     Active Substance: TOFACITINIB CITRATE
     Indication: RHEUMATOID ARTHRITIS
     Route: 048
     Dates: start: 20170623
  15. HYDROXYCHLOR [Concomitant]
     Active Substance: HYDROXYCHLOROQUINE
  16. LEVOTHYROXIN [Concomitant]
     Active Substance: LEVOTHYROXINE
  17. LORAZEPAM. [Concomitant]
     Active Substance: LORAZEPAM
  18. VITAMIN D [Concomitant]
     Active Substance: VITAMIN D NOS

REACTIONS (2)
  - Endometrial cancer [None]
  - Therapy interrupted [None]

NARRATIVE: CASE EVENT DATE: 20210701
